FAERS Safety Report 8959389 (Version 1)
Quarter: 2012Q4

REPORT INFORMATION
  Report Type: 
  Country: US (occurrence: US)
  Receive Date: 20121211
  Receipt Date: 20121211
  Transmission Date: 20130627
  Serious: No
  Sender: FDA-Public Use
  Company Number: US-ASTRAZENECA-2012SE87406

PATIENT
  Age: 62 Year
  Sex: Female
  Weight: 85.3 kg

DRUGS (6)
  1. TOPROL XL [Suspect]
     Indication: HYPERTENSION
     Route: 048
     Dates: start: 2005
  2. TOPROL XL [Suspect]
     Indication: TACHYCARDIA
     Route: 048
     Dates: start: 2005
  3. TOPROL XL [Suspect]
     Indication: HYPERTENSION
     Route: 048
     Dates: start: 2005, end: 2005
  4. TOPROL XL [Suspect]
     Indication: TACHYCARDIA
     Route: 048
     Dates: start: 2005, end: 2005
  5. METOPROLOL [Suspect]
     Indication: TACHYCARDIA
     Route: 048
  6. SYNTHROID [Concomitant]

REACTIONS (6)
  - Abdominal distension [Recovered/Resolved]
  - Feeling abnormal [Recovered/Resolved]
  - Flatulence [Recovered/Resolved]
  - Drug intolerance [Unknown]
  - Tachycardia [Unknown]
  - Drug ineffective [Unknown]
